FAERS Safety Report 9319769 (Version 1)
Quarter: 2013Q1

REPORT INFORMATION
  Report Type: Spontaneous
  Country: US (occurrence: None)
  Receive Date: 20130322
  Receipt Date: 20130322
  Transmission Date: 20140127
  Serious: Yes (Hospitalization, Other)
  Sender: FDA-Public Use
  Company Number: 35904

PATIENT
  Sex: Female
  Weight: 108.86 kg

DRUGS (4)
  1. GLASSIA [Suspect]
     Indication: ALPHA-1 ANTI-TRYPSIN DEFICIENCY
     Route: 042
     Dates: start: 20110711, end: 20130208
  2. PROMETHAZINE [Concomitant]
  3. CEFTIN [Concomitant]
  4. DOXYCYCLINE [Concomitant]

REACTIONS (4)
  - Lung disorder [None]
  - Malaise [None]
  - Dyspnoea [None]
  - Groin abscess [None]
